FAERS Safety Report 9123380 (Version 1)
Quarter: 2013Q1

REPORT INFORMATION
  Report Type: Spontaneous
  Country: US (occurrence: US)
  Receive Date: 20130227
  Receipt Date: 20130227
  Transmission Date: 20140127
  Serious: No
  Sender: FDA-Public Use
  Company Number: US-PFIZER INC-2013068430

PATIENT
  Age: 74 Year
  Sex: Male

DRUGS (10)
  1. ALPRAZOLAM [Suspect]
     Dosage: UNK
  2. ERYTHROMYCIN [Suspect]
     Dosage: UNK
  3. TETRACYCLINE HCL [Suspect]
     Dosage: UNK
  4. LIBRIUM [Suspect]
     Dosage: UNK
  5. MECLIZINE [Suspect]
     Dosage: UNK
  6. PROPOXYPHENE NAPSYLATE AND ACETAMINOPHEN [Suspect]
     Dosage: UNK
  7. DYAZIDE [Suspect]
     Dosage: UNK
  8. HYDROMORPHONE [Suspect]
     Dosage: UNK
  9. FURADANTIN [Suspect]
     Dosage: UNK
  10. PENICILLIN NOS [Suspect]
     Dosage: UNK

REACTIONS (1)
  - Drug hypersensitivity [Unknown]
